FAERS Safety Report 4907327-5 (Version None)
Quarter: 2006Q1

REPORT INFORMATION
  Report Type: 
  Country: None (occurrence: None)
  Receive Date: 20060207
  Receipt Date: 20060131
  Transmission Date: 20060701
  Serious: Yes (Hospitalization, Other)
  Sender: FDA-Public Use
  Company Number: 2006015910

PATIENT
  Sex: Female

DRUGS (2)
  1. LYRICA [Suspect]
     Indication: ILL-DEFINED DISORDER
     Dosage: 150 MG (75 MG, 2 IN 1 D)
  2. CRESTOR [Suspect]
     Indication: ILL-DEFINED DISORDER

REACTIONS (3)
  - FORMICATION [None]
  - HALLUCINATION [None]
  - PHYSICAL ASSAULT [None]
